FAERS Safety Report 10663986 (Version 1)
Quarter: 2014Q4

REPORT INFORMATION
  Report Type: Spontaneous
  Country: US (occurrence: None)
  Receive Date: 20141218
  Receipt Date: 20141218
  Transmission Date: 20150529
  Serious: Yes (Other)
  Sender: FDA-Public Use
  Company Number: None

PATIENT
  Age: 34 Year
  Sex: Female

DRUGS (1)
  1. LUPRON DEPOT [Suspect]
     Active Substance: LEUPROLIDE ACETATE
     Indication: ENDOMETRIOSIS
     Dosage: STRENGTH: 3.75MG, DOSE FORM: INJECTABLE, ROUTE: INTRAMUSCULAR 030, FREQUENCY: Q MONTH
     Route: 030
     Dates: start: 20140717, end: 20141118

REACTIONS (7)
  - Hot flush [None]
  - Weight decreased [None]
  - Emotional disorder [None]
  - Appetite disorder [None]
  - Insomnia [None]
  - Back pain [None]
  - Gastric disorder [None]

NARRATIVE: CASE EVENT DATE: 20141216
